FAERS Safety Report 24885958 (Version 1)
Quarter: 2025Q1

REPORT INFORMATION
  Report Type: Spontaneous
  Country: US (occurrence: US)
  Receive Date: 20250125
  Receipt Date: 20250125
  Transmission Date: 20250409
  Serious: No
  Sender: ABBVIE
  Company Number: US-ABBVIE-6100848

PATIENT

DRUGS (1)
  1. SKYRIZI [Suspect]
     Active Substance: RISANKIZUMAB-RZAA
     Indication: Autoimmune disorder
     Route: 058

REACTIONS (4)
  - Influenza [Unknown]
  - Streptococcus test positive [Unknown]
  - Therapeutic product effect decreased [Unknown]
  - Autoimmune disorder [Unknown]
